FAERS Safety Report 4968446-0 (Version None)
Quarter: 2006Q2

REPORT INFORMATION
  Report Type: 
  Country: None (occurrence: None)
  Receive Date: 20060410
  Receipt Date: 20051013
  Transmission Date: 20061013
  Serious: Yes (Other)
  Sender: FDA-Public Use
  Company Number: PR-MERCK-0510USA07178

PATIENT
  Age: 73 Year
  Sex: Female
  Weight: 85 kg

DRUGS (10)
  1. VIOXX [Suspect]
     Indication: ARTHRALGIA
     Route: 048
     Dates: start: 19990101, end: 20040101
  2. COUMADIN [Concomitant]
     Route: 065
  3. TENORMIN [Concomitant]
     Route: 065
  4. VASOTEC [Concomitant]
     Route: 065
  5. ZOLOFT [Concomitant]
     Route: 065
  6. MOTRIN [Concomitant]
     Route: 065
  7. APRESOLINE [Concomitant]
     Route: 065
  8. ACETAMINOPHEN [Concomitant]
     Route: 065
  9. ULTRAN [Concomitant]
     Route: 065
  10. TYLENOL (CAPLET) [Concomitant]
     Route: 065

REACTIONS (4)
  - CEREBROVASCULAR ACCIDENT [None]
  - CONVULSION [None]
  - HYPERTENSION [None]
  - MYOCARDIAL INFARCTION [None]
